FAERS Safety Report 23577105 (Version 1)
Quarter: 2024Q1

REPORT INFORMATION
  Report Type: Spontaneous
  Country: US (occurrence: US)
  Receive Date: 20240228
  Receipt Date: 20240228
  Transmission Date: 20240410
  Serious: No
  Sender: FDA-Public Use
  Company Number: US-PFIZER INC-PV202400025786

PATIENT
  Age: 56 Year
  Sex: Female
  Weight: 78.5 kg

DRUGS (2)
  1. IBRANCE [Suspect]
     Active Substance: PALBOCICLIB
     Indication: Breast cancer metastatic
     Dosage: 125 MG, CYCLIC (1 PILL DAILY FOR 21 DAYS ON, AND 7 DAYS OFF)
     Route: 048
     Dates: start: 20210819
  2. LETROZOLE [Suspect]
     Active Substance: LETROZOLE
     Dosage: UNK
     Dates: start: 20210819, end: 20220428

REACTIONS (1)
  - Arthralgia [Unknown]
